FAERS Safety Report 11116243 (Version 1)
Quarter: 2015Q2

REPORT INFORMATION
  Report Type: Spontaneous
  Country: US (occurrence: US)
  Receive Date: 20150515
  Receipt Date: 20150515
  Transmission Date: 20150821
  Serious: Yes (Other)
  Sender: FDA-Public Use
  Company Number: US-ACTAVIS-2015-09429

PATIENT
  Age: 60 Year
  Sex: Male

DRUGS (6)
  1. ZOLPIDEM TARTRATE (WATSON LABORATORIES) [Suspect]
     Active Substance: ZOLPIDEM TARTRATE
     Indication: DRUG DISPENSING ERROR
     Dosage: 12.5 MG, QAM
     Route: 065
  2. SIMVASTATIN. [Concomitant]
     Active Substance: SIMVASTATIN
     Indication: PRODUCT USED FOR UNKNOWN INDICATION
     Dosage: UNK
     Route: 065
  3. LISINOPRIL (WATSON LABORATORIES) [Suspect]
     Active Substance: LISINOPRIL
     Indication: DRUG DISPENSING ERROR
     Dosage: UNK
     Route: 065
  4. ZOLPIDEM TARTRATE (WATSON LABORATORIES) [Suspect]
     Active Substance: ZOLPIDEM TARTRATE
     Dosage: 12.5 MG, QPM
     Route: 065
  5. LISINOPRIL (WATSON LABORATORIES) [Suspect]
     Active Substance: LISINOPRIL
     Indication: HYPERTENSION
  6. ALLOPURINOL. [Concomitant]
     Active Substance: ALLOPURINOL
     Indication: PRODUCT USED FOR UNKNOWN INDICATION
     Dosage: UNK
     Route: 065

REACTIONS (8)
  - Somnambulism [Recovered/Resolved]
  - Hypotonia [Recovered/Resolved]
  - Gait disturbance [Recovered/Resolved]
  - Drug dispensing error [Recovered/Resolved]
  - Metamorphopsia [Recovered/Resolved]
  - Confusional state [Recovered/Resolved]
  - Diplopia [Recovered/Resolved]
  - Increased appetite [Recovered/Resolved]
